FAERS Safety Report 5799419-6 (Version None)
Quarter: 2008Q3

REPORT INFORMATION
  Report Type: 
  Country: None (occurrence: None)
  Receive Date: 20080703
  Receipt Date: 20080619
  Transmission Date: 20090109
  Serious: Yes (Other)
  Sender: FDA-Public Use
  Company Number: US-PFIZER INC-2008054662

PATIENT
  Sex: Male
  Weight: 72.727 kg

DRUGS (4)
  1. CHANTIX [Suspect]
     Indication: SMOKING CESSATION THERAPY
  2. ANALGESICS [Concomitant]
  3. ALL OTHER THERAPEUTIC PRODUCTS [Concomitant]
  4. ANTIDEPRESSANTS [Concomitant]

REACTIONS (4)
  - ALCOHOL USE [None]
  - ANXIETY [None]
  - DEPRESSION [None]
  - PAROSMIA [None]
